FAERS Safety Report 24121123 (Version 1)
Quarter: 2024Q3

REPORT INFORMATION
  Report Type: Report from Study
  Country: US (occurrence: US)
  Receive Date: 20240722
  Receipt Date: 20240722
  Transmission Date: 20241017
  Serious: Yes (Life-Threatening, Hospitalization)
  Sender: BAUSCH AND LOMB
  Company Number: US-BAUSCH-BL-2024-010851

PATIENT
  Age: 83 Year
  Sex: Male

DRUGS (1)
  1. XIFAXAN [Suspect]
     Active Substance: RIFAXIMIN
     Indication: Product used for unknown indication
     Route: 048
     Dates: start: 202406

REACTIONS (8)
  - Penile haemorrhage [Unknown]
  - Skin exfoliation [Unknown]
  - Skin discolouration [Unknown]
  - Hypophagia [Unknown]
  - Fluid intake reduced [Unknown]
  - Arterial occlusive disease [Unknown]
  - Constipation [Unknown]
  - Therapy interrupted [Unknown]

NARRATIVE: CASE EVENT DATE: 20240101
